FAERS Safety Report 6762014-6 (Version None)
Quarter: 2010Q2

REPORT INFORMATION
  Report Type: 
  Country: None (occurrence: None)
  Receive Date: 20100609
  Receipt Date: 20100525
  Transmission Date: 20101027
  Serious: Yes (Hospitalization, Other)
  Sender: FDA-Public Use
  Company Number: PHHY2010US34329

PATIENT
  Age: 56 Year
  Sex: Male

DRUGS (5)
  1. CLOZAPINE [Suspect]
     Indication: SCHIZOPHRENIA
     Dosage: UNK
  2. CLOZAPINE [Suspect]
     Dosage: 12.5 MG/DAY
  3. CLOZAPINE [Suspect]
     Dosage: 25 MG/DAY
  4. CLOZAPINE [Suspect]
     Dosage: 325 MG/DAY
  5. CLOZAPINE [Suspect]
     Dosage: 425 MG/DAY

REACTIONS (8)
  - ABNORMAL BEHAVIOUR [None]
  - ACTIVITIES OF DAILY LIVING IMPAIRED [None]
  - DELUSION [None]
  - DIZZINESS [None]
  - NEUTROPENIA [None]
  - SOCIAL AVOIDANT BEHAVIOUR [None]
  - SUSPICIOUSNESS [None]
  - SYNCOPE [None]
